FAERS Safety Report 26142051 (Version 1)
Quarter: 2025Q4

REPORT INFORMATION
  Report Type: Spontaneous
  Country: US (occurrence: None)
  Receive Date: 20251210
  Receipt Date: 20251210
  Transmission Date: 20260118
  Serious: Yes (Hospitalization)
  Sender: FDA-CTU
  Company Number: None

PATIENT
  Sex: Male

DRUGS (8)
  1. PULMOZYME [Suspect]
     Active Substance: DORNASE ALFA
     Indication: Infective pulmonary exacerbation of cystic fibrosis
     Dosage: FREQUENCY : DAILY;
     Route: 055
     Dates: start: 20200324
  2. TOBRAMYCIN [Suspect]
     Active Substance: TOBRAMYCIN
     Dosage: FREQUENCY : TWICE A DAY;
     Route: 055
     Dates: start: 20200331
  3. TRIKAFTA [Suspect]
     Active Substance: ELEXACAFTOR\IVACAFTOR\TEZACAFTOR
  4. VANCOMYCIN [Suspect]
     Active Substance: VANCOMYCIN
  5. TOBRAMYCIN [Concomitant]
     Active Substance: TOBRAMYCIN
  6. PULMOZYME [Concomitant]
     Active Substance: DORNASE ALFA
  7. COLISTIMETHATE SODIUM [Concomitant]
     Active Substance: COLISTIMETHATE SODIUM
  8. VANCOMYCIN [Concomitant]
     Active Substance: VANCOMYCIN

REACTIONS (1)
  - Hospitalisation [None]
